FAERS Safety Report 6568554-7 (Version None)
Quarter: 2010Q1

REPORT INFORMATION
  Report Type: 
  Country: None (occurrence: None)
  Receive Date: 20100129
  Receipt Date: 20100129
  Transmission Date: 20100710
  Serious: Yes (Other)
  Sender: FDA-Public Use
  Company Number: F701262

PATIENT
  Sex: Female

DRUGS (1)
  1. BLINK GEL TEARS [Suspect]
     Indication: DRY EYE
     Dosage: PRN
     Dates: start: 20090920

REACTIONS (7)
  - CHEMICAL EYE INJURY [None]
  - DRUG HYPERSENSITIVITY [None]
  - EYE BURNS [None]
  - EYE IRRITATION [None]
  - FOREIGN BODY SENSATION IN EYES [None]
  - OCULAR HYPERAEMIA [None]
  - REACTION TO PRESERVATIVES [None]
